FAERS Safety Report 17475747 (Version 1)
Quarter: 2020Q1

REPORT INFORMATION
  Report Type: Report from Study
  Country: CA (occurrence: CA)
  Receive Date: 20200228
  Receipt Date: 20200228
  Transmission Date: 20200409
  Serious: Yes (Other)
  Sender: FDA-Public Use
  Company Number: CA-JNJFOC-20190918797

PATIENT
  Sex: Male
  Weight: 84.4 kg

DRUGS (5)
  1. ACTONEL [Concomitant]
     Active Substance: RISEDRONATE SODIUM
  2. MEDROL [Concomitant]
     Active Substance: METHYLPREDNISOLONE
  3. REMERON [Concomitant]
     Active Substance: MIRTAZAPINE
  4. DEXILANT [Concomitant]
     Active Substance: DEXLANSOPRAZOLE
  5. SIMPONI [Suspect]
     Active Substance: GOLIMUMAB
     Indication: ANKYLOSING SPONDYLITIS
     Route: 042
     Dates: start: 20170821

REACTIONS (5)
  - Back pain [Unknown]
  - Myalgia [Unknown]
  - Headache [Unknown]
  - Musculoskeletal pain [Unknown]
  - Pneumonia [Recovered/Resolved]
